FAERS Safety Report 4438552-8 (Version None)
Quarter: 2004Q3

REPORT INFORMATION
  Report Type: 
  Country: None (occurrence: None)
  Receive Date: 20040728
  Receipt Date: 20040304
  Transmission Date: 20050211
  Serious: No
  Sender: FDA-Public Use
  Company Number: USA040361017

PATIENT
  Sex: Female
  Weight: 48 kg

DRUGS (2)
  1. STRATTERA [Suspect]
     Dosage: 50 MG/1 DAY
     Dates: start: 20040201
  2. PAXIL CR [Concomitant]

REACTIONS (1)
  - ANGER [None]
